FAERS Safety Report 23069609 (Version 1)
Quarter: 2023Q4

REPORT INFORMATION
  Report Type: Spontaneous
  Country: US (occurrence: US)
  Receive Date: 20231016
  Receipt Date: 20231016
  Transmission Date: 20240109
  Serious: No
  Sender: FDA-Public Use
  Company Number: US-BAYER-2023A144199

PATIENT
  Age: 81 Year
  Sex: Male

DRUGS (1)
  1. MIRALAX [Suspect]
     Active Substance: POLYETHYLENE GLYCOL 3350
     Indication: Abdominal pain upper
     Dosage: 1 DF
     Route: 048
     Dates: start: 20231010

REACTIONS (2)
  - Drug effective for unapproved indication [Recovering/Resolving]
  - Incorrect dose administered [None]

NARRATIVE: CASE EVENT DATE: 20231012
